FAERS Safety Report 11358856 (Version 1)
Quarter: 2015Q3

REPORT INFORMATION
  Report Type: Spontaneous
  Country: US (occurrence: None)
  Receive Date: 20150807
  Receipt Date: 20150807
  Transmission Date: 20151125
  Serious: Yes (Other)
  Sender: FDA-Public Use
  Company Number: None

PATIENT
  Age: 64 Year
  Sex: Male
  Weight: 97.98 kg

DRUGS (14)
  1. ALBUTEROL. [Concomitant]
     Active Substance: ALBUTEROL
  2. FUROSEMIDE. [Concomitant]
     Active Substance: FUROSEMIDE
  3. ALBUTEROL. [Concomitant]
     Active Substance: ALBUTEROL
  4. TADALAFIL VS PLACEBO [Concomitant]
  5. METOPROLOL TARTRATE. [Concomitant]
     Active Substance: METOPROLOL TARTRATE
  6. LISINOPRIL. [Concomitant]
     Active Substance: LISINOPRIL
  7. TIOTROPIUM [Concomitant]
     Active Substance: TIOTROPIUM
  8. ADCIRCA [Suspect]
     Active Substance: TADALAFIL
     Indication: PULMONARY HYPERTENSION
     Dosage: 2 PILLS QD ORAL
     Route: 048
  9. OMEPRAZOLE. [Concomitant]
     Active Substance: OMEPRAZOLE
  10. ASPIRIN /DIPYRIDAMOLE [Concomitant]
  11. ATORVASTATIN CALCIUM. [Concomitant]
     Active Substance: ATORVASTATIN CALCIUM
  12. ASPIRIN. [Concomitant]
     Active Substance: ASPIRIN
  13. BUDESONIDE 160/FORMOTER 4.5 [Concomitant]
  14. LORATADINE. [Concomitant]
     Active Substance: LORATADINE

REACTIONS (4)
  - Hyperhidrosis [None]
  - Nausea [None]
  - Dyspnoea [None]
  - Feeling hot [None]

NARRATIVE: CASE EVENT DATE: 20150226
